FAERS Safety Report 19964887 (Version 2)
Quarter: 2021Q4

REPORT INFORMATION
  Report Type: Spontaneous
  Country: NL (occurrence: US)
  Receive Date: 20211018
  Receipt Date: 20211025
  Transmission Date: 20220303
  Serious: Yes (Death, Life-Threatening, Hospitalization, Other)
  Sender: FDA-Public Use
  Company Number: NL-SA-2021SA342680

PATIENT
  Age: 52 Year
  Sex: Female

DRUGS (2)
  1. LEFLUNOMIDE [Suspect]
     Active Substance: LEFLUNOMIDE
     Indication: Rheumatoid arthritis
     Dosage: UNK
  2. PREDNISONE [Suspect]
     Active Substance: PREDNISONE
     Indication: Rheumatoid arthritis
     Dosage: UNK

REACTIONS (16)
  - Toxicity to various agents [Fatal]
  - Cellulitis gangrenous [Fatal]
  - Abscess limb [Fatal]
  - Escherichia bacteraemia [Fatal]
  - Purulent discharge [Fatal]
  - Skin ulcer [Fatal]
  - Encephalopathy [Fatal]
  - Ecthyma [Fatal]
  - Histoplasmosis [Fatal]
  - Lymphopenia [Fatal]
  - Pulmonary haemorrhage [Fatal]
  - Renal failure [Fatal]
  - Shock [Fatal]
  - Acute respiratory failure [Fatal]
  - Enterococcal infection [Fatal]
  - Pseudomonas infection [Fatal]
